FAERS Safety Report 20722288 (Version 1)
Quarter: 2022Q2

REPORT INFORMATION
  Report Type: Spontaneous
  Country: US (occurrence: US)
  Receive Date: 20220418
  Receipt Date: 20220418
  Transmission Date: 20220721
  Serious: No
  Sender: FDA-Public Use
  Company Number: US-PFIZER INC-202101741958

PATIENT
  Age: 62 Year
  Sex: Female
  Weight: 48.53 kg

DRUGS (2)
  1. IBRANCE [Suspect]
     Active Substance: PALBOCICLIB
     Indication: Breast cancer stage IV
     Dosage: 100 MG, CYCLIC (ONCE A DAY BY MOUTH FOR THREE WEEKS ON AND ONE WEEK OFF)
     Route: 048
  2. IBRANCE [Suspect]
     Active Substance: PALBOCICLIB
     Indication: Metastasis
     Dosage: 100 MG

REACTIONS (2)
  - Product dose omission issue [Unknown]
  - Illness [Unknown]
